FAERS Safety Report 8228959-5 (Version None)
Quarter: 2012Q1

REPORT INFORMATION
  Report Type: 
  Country: None (occurrence: None)
  Receive Date: 20120322
  Receipt Date: 20120317
  Transmission Date: 20120608
  Serious: Yes (Death, Hospitalization, Other)
  Sender: FDA-Public Use
  Company Number: IN-PFIZER INC-2012032455

PATIENT
  Age: 50 Year
  Sex: Female

DRUGS (1)
  1. SUTENT [Suspect]
     Indication: METASTATIC RENAL CELL CARCINOMA
     Dosage: 50 MG, 1X/DAY
     Route: 048
     Dates: start: 20110604, end: 20120301

REACTIONS (9)
  - DEATH [None]
  - THROMBOCYTOPENIA [None]
  - ANAEMIA [None]
  - ASTHENIA [None]
  - PLATELET COUNT DECREASED [None]
  - SWOLLEN TONGUE [None]
  - BLOOD PRESSURE INCREASED [None]
  - EPISTAXIS [None]
  - HYPOTENSION [None]
